FAERS Safety Report 8216126-0 (Version None)
Quarter: 2012Q1

REPORT INFORMATION
  Report Type: 
  Country: None (occurrence: None)
  Receive Date: 20120316
  Receipt Date: 20120309
  Transmission Date: 20120608
  Serious: Yes (Other)
  Sender: FDA-Public Use
  Company Number: BR-ELI_LILLY_AND_COMPANY-BR201203002924

PATIENT
  Sex: Female
  Weight: 48 kg

DRUGS (10)
  1. HUMULIN N [Suspect]
     Dosage: 15 IU, EACH MORNING
     Route: 058
     Dates: start: 20120213
  2. SIMVASTATIN [Concomitant]
     Dosage: 20 MG, QD
     Route: 065
  3. VASOGARD [Concomitant]
     Indication: ANGIOPATHY
     Dosage: UNK, QD
  4. HUMULIN N [Suspect]
     Dosage: 20 IU, EACH MORNING
     Route: 058
  5. ENALAPRIL MALEATE [Concomitant]
     Indication: BLOOD PRESSURE
     Dosage: UNK, QD
  6. HUMULIN N [Suspect]
     Indication: TYPE 2 DIABETES MELLITUS
     Dosage: UNK UNK, QD
     Route: 058
     Dates: start: 20110901
  7. HUMULIN N [Suspect]
     Dosage: 20 IU, EACH MORNING
     Route: 058
  8. METFORMIN HYDROCHLORIDE [Concomitant]
     Dosage: 850 MG, TID
     Route: 065
  9. HUMULIN N [Suspect]
     Dosage: 10 IU, QD
     Route: 058
  10. HUMULIN N [Suspect]
     Dosage: 10 IU, QD
     Route: 058

REACTIONS (11)
  - ASTHENIA [None]
  - MUSCULOSKELETAL STIFFNESS [None]
  - WEIGHT INCREASED [None]
  - BLOOD GLUCOSE DECREASED [None]
  - HYPOGLYCAEMIA [None]
  - DRUG DOSE OMISSION [None]
  - HYPERHIDROSIS [None]
  - BLOOD GLUCOSE INCREASED [None]
  - INTENTIONAL DRUG MISUSE [None]
  - SYNCOPE [None]
  - DIZZINESS [None]
